FAERS Safety Report 9487032 (Version 1)
Quarter: 2013Q3

REPORT INFORMATION
  Report Type: Spontaneous
  Country: US (occurrence: None)
  Receive Date: 20130827
  Receipt Date: 20130827
  Transmission Date: 20140515
  Serious: Yes (Hospitalization)
  Sender: FDA-Public Use
  Company Number: US-ME-2012P1061324

PATIENT
  Age: 65 Year
  Sex: Male
  Weight: 132 kg

DRUGS (10)
  1. TAMBOCOR [Suspect]
     Dosage: 2 IN 1 D
     Route: 048
     Dates: start: 20121022
  2. MULTIVITAMIN [Concomitant]
  3. DILTIAZEM [Concomitant]
  4. SIMVASTATIN [Concomitant]
  5. VITAMIN B12 [Concomitant]
  6. VITAMIN D3 [Concomitant]
  7. PNEUMOCOCCAL [Concomitant]
  8. ASPIRIN [Concomitant]
  9. EFFIENT [Concomitant]
  10. PRADAXA [Concomitant]

REACTIONS (3)
  - Heart valve incompetence [None]
  - Coronary artery occlusion [None]
  - Treatment noncompliance [None]
